FAERS Safety Report 8936958 (Version 1)
Quarter: 2012Q4

REPORT INFORMATION
  Report Type: 
  Country: CA (occurrence: CA)
  Receive Date: 20121130
  Receipt Date: 20121130
  Transmission Date: 20130627
  Serious: Yes (Other)
  Sender: FDA-Public Use
  Company Number: CA-ROCHE-1161795

PATIENT

DRUGS (1)
  1. XOLAIR [Suspect]
     Indication: ASTHMA
     Route: 065
     Dates: start: 20070718

REACTIONS (4)
  - Blood pressure increased [Unknown]
  - Nasopharyngitis [Unknown]
  - Asthma [Unknown]
  - Injection site pain [Unknown]
